FAERS Safety Report 21849226 (Version 1)
Quarter: 2023Q1

REPORT INFORMATION
  Report Type: Spontaneous
  Country: US (occurrence: None)
  Receive Date: 20230111
  Receipt Date: 20230111
  Transmission Date: 20230417
  Serious: Yes (Hospitalization)
  Sender: FDA-Public Use
  Company Number: None

PATIENT
  Sex: Male
  Weight: 120 kg

DRUGS (1)
  1. CISPLATIN [Suspect]
     Active Substance: CISPLATIN
     Dates: end: 20221228

REACTIONS (7)
  - Presyncope [None]
  - Pulmonary embolism [None]
  - Deep vein thrombosis [None]
  - Dyspnoea [None]
  - Dizziness [None]
  - Fall [None]
  - Deep vein thrombosis [None]

NARRATIVE: CASE EVENT DATE: 20230109
